FAERS Safety Report 16682496 (Version 1)
Quarter: 2019Q3

REPORT INFORMATION
  Report Type: Spontaneous
  Country: FR (occurrence: FR)
  Receive Date: 20190808
  Receipt Date: 20190808
  Transmission Date: 20191004
  Serious: Yes (Death)
  Sender: FDA-Public Use
  Company Number: FR-PFIZER INC-2019334519

PATIENT
  Age: 17 Year

DRUGS (2)
  1. FLUCONAZOLE. [Suspect]
     Active Substance: FLUCONAZOLE
     Indication: CANDIDA INFECTION
     Dosage: 600 MG, 1X/DAY (10 MG/KG PER DAY)
     Route: 042
  2. FLUCONAZOLE. [Suspect]
     Active Substance: FLUCONAZOLE
     Indication: PERITONEAL CANDIDIASIS

REACTIONS (4)
  - Treatment failure [Fatal]
  - Septic shock [Fatal]
  - Chemical peritonitis [Fatal]
  - Fungal peritonitis [Fatal]
